FAERS Safety Report 13504769 (Version 2)
Quarter: 2017Q3

REPORT INFORMATION
  Report Type: Spontaneous
  Country: US (occurrence: US)
  Receive Date: 20170502
  Receipt Date: 20170724
  Transmission Date: 20171127
  Serious: No
  Sender: FDA-Public Use
  Company Number: US-IMPAX LABORATORIES, INC-2017-IPXL-00174

PATIENT
  Sex: Female
  Weight: 56 kg

DRUGS (7)
  1. RYTARY [Suspect]
     Active Substance: CARBIDOPA\LEVODOPA
     Indication: PARKINSON^S DISEASE
     Dosage: 3 DF, 3 /DAY
     Route: 048
     Dates: start: 20160823, end: 2016
  2. RYTARY [Suspect]
     Active Substance: CARBIDOPA\LEVODOPA
     Dosage: 23.75/95 MG
     Route: 048
  3. METFORMIN [Concomitant]
     Active Substance: METFORMIN HYDROCHLORIDE
     Indication: DIABETES MELLITUS
     Dosage: 2000 MG; UNK
     Route: 065
     Dates: start: 2006
  4. PRAVASTATIN. [Concomitant]
     Active Substance: PRAVASTATIN
     Indication: BLOOD CHOLESTEROL INCREASED
     Dosage: 80 MG
     Route: 065
     Dates: start: 20161128
  5. METOPROLOL. [Concomitant]
     Active Substance: METOPROLOL
     Indication: CARDIAC DISORDER
     Dosage: UNK
     Route: 065
     Dates: start: 2007
  6. RYTARY [Suspect]
     Active Substance: CARBIDOPA\LEVODOPA
     Dosage: 36.25/145MG; 2 CAPSULES 3 TIMES A DAY
     Route: 048
     Dates: start: 20161124, end: 20170126
  7. ISOSORBIDE MONONITRATE. [Concomitant]
     Active Substance: ISOSORBIDE MONONITRATE
     Indication: CARDIAC DISORDER
     Dosage: 30 MG; UNK
     Route: 065

REACTIONS (13)
  - Muscular weakness [Unknown]
  - Abdominal discomfort [Unknown]
  - Coordination abnormal [Unknown]
  - Vision blurred [Unknown]
  - Dry eye [Unknown]
  - Vitreous floaters [Unknown]
  - Tongue dry [Unknown]
  - Lip dry [Unknown]
  - Dry mouth [Unknown]
  - Therapeutic response shortened [Unknown]
  - Tremor [Unknown]
  - Language disorder [Unknown]
  - Dyskinesia [Unknown]

NARRATIVE: CASE EVENT DATE: 2016
